FAERS Safety Report 18710905 (Version 1)
Quarter: 2021Q1

REPORT INFORMATION
  Report Type: Report from Study
  Country: IT (occurrence: IT)
  Receive Date: 20210107
  Receipt Date: 20210107
  Transmission Date: 20210419
  Serious: Yes (Death, Other)
  Sender: FDA-Public Use
  Company Number: IT-TAKEDA-IT202000645

PATIENT

DRUGS (10)
  1. ZAVICEFTA [Concomitant]
     Active Substance: AVIBACTAM SODIUM\CEFTAZIDIME
     Indication: BACTERIAL SEPSIS
  2. BISOPROLOL [Concomitant]
     Active Substance: BISOPROLOL
     Indication: HYPERTENSION
  3. COAGULATION FACTOR VIII (PORCINE, RECOMBINANT) [Suspect]
     Active Substance: ANTIHEMOPHILIC FACTOR PORCINE, B-DOMAIN TRUNCATED RECOMBINANT
     Indication: ACQUIRED HAEMOPHILIA
     Dosage: 4500 UNKNOWN UNIT, 2X/DAY:BID
     Route: 050
     Dates: start: 20191226, end: 20191226
  4. COAGULATION FACTOR VIII (PORCINE, RECOMBINANT) [Suspect]
     Active Substance: ANTIHEMOPHILIC FACTOR PORCINE, B-DOMAIN TRUNCATED RECOMBINANT
     Indication: ACQUIRED HAEMOPHILIA
     Dosage: 4500 UNKNOWN UNIT, 2X/DAY:BID
     Route: 050
     Dates: start: 20191226, end: 20191226
  5. INSULIN [Concomitant]
     Active Substance: INSULIN NOS
     Indication: TYPE 2 DIABETES MELLITUS
  6. ROSUVASTATIN. [Concomitant]
     Active Substance: ROSUVASTATIN
     Indication: PRODUCT USED FOR UNKNOWN INDICATION
  7. NOVOSEVEN [Concomitant]
     Active Substance: COAGULATION FACTOR VIIA RECOMBINANT HUMAN
     Indication: ACQUIRED HAEMOPHILIA
  8. EUTIROX [Concomitant]
     Active Substance: LEVOTHYROXINE SODIUM
     Indication: HYPOTHYROIDISM
  9. AMIKACIN. [Concomitant]
     Active Substance: AMIKACIN
     Indication: BACTERIAL SEPSIS
  10. PREDNISONE. [Concomitant]
     Active Substance: PREDNISONE
     Indication: ACQUIRED HAEMOPHILIA

REACTIONS (1)
  - Cerebral haemorrhage [Fatal]

NARRATIVE: CASE EVENT DATE: 20200107
